FAERS Safety Report 5322123-5 (Version None)
Quarter: 2007Q2

REPORT INFORMATION
  Report Type: 
  Country: None (occurrence: None)
  Receive Date: 20070507
  Receipt Date: 20070424
  Transmission Date: 20071010
  Serious: Yes (Hospitalization)
  Sender: FDA-Public Use
  Company Number: 2007BI008130

PATIENT
  Age: 48 Year
  Sex: Female

DRUGS (1)
  1. NATALIZUMAB [Suspect]
     Indication: MULTIPLE SCLEROSIS
     Dosage: 300 MG;QM;IV
     Route: 042
     Dates: start: 20070405

REACTIONS (5)
  - COORDINATION ABNORMAL [None]
  - FALL [None]
  - FATIGUE [None]
  - MULTIPLE SCLEROSIS [None]
  - MUSCLE SPASTICITY [None]
